FAERS Safety Report 21649727 (Version 3)
Quarter: 2023Q4

REPORT INFORMATION
  Report Type: Report from Study
  Country: GB (occurrence: GB)
  Receive Date: 20221128
  Receipt Date: 20231010
  Transmission Date: 20240109
  Serious: Yes (Other)
  Sender: FDA-Public Use
  Company Number: None

PATIENT
  Age: 80 Year
  Sex: Female

DRUGS (6)
  1. PRAMIPEXOLE [Suspect]
     Active Substance: PRAMIPEXOLE
     Indication: Product used for unknown indication
     Route: 065
  2. CARBIDOPA\LEVODOPA [Suspect]
     Active Substance: CARBIDOPA\LEVODOPA
     Indication: Parkinson^s disease
     Dosage: ED 1.5MLS; MD-6MLS.CD 0.6ML INCREASED TO 0.8ML
     Route: 045
  3. ENTACAPONE [Concomitant]
     Active Substance: ENTACAPONE
     Indication: Product used for unknown indication
     Route: 065
  4. MOVICOL [Concomitant]
     Active Substance: POLYETHYLENE GLYCOL 3350\POTASSIUM CHLORIDE\SODIUM BICARBONATE\SODIUM CHLORIDE
     Indication: Product used for unknown indication
     Dosage: 1 SACHET;
     Route: 065
  5. RASAGILINE [Concomitant]
     Active Substance: RASAGILINE
     Indication: Product used for unknown indication
     Dosage: AT 5 AM
     Route: 065
  6. SINEMET CR [Concomitant]
     Active Substance: CARBIDOPA\LEVODOPA
     Indication: Product used for unknown indication
     Dosage: HALF, 25/100MG; ; CONTROLLED RELEASE
     Route: 065

REACTIONS (33)
  - Haematochezia [Unknown]
  - Device expulsion [Unknown]
  - Peripheral swelling [Unknown]
  - Erythema [Unknown]
  - Stoma site infection [Unknown]
  - Wrong device used [Recovered/Resolved]
  - Balance disorder [Unknown]
  - Tremor [Not Recovered/Not Resolved]
  - Dystonia [Unknown]
  - Mobility decreased [Not Recovered/Not Resolved]
  - Muscle spasms [Unknown]
  - Gait disturbance [Unknown]
  - Device dislocation [Unknown]
  - Muscle rigidity [Not Recovered/Not Resolved]
  - Abdominal distension [Not Recovered/Not Resolved]
  - Stoma site discharge [Unknown]
  - Constipation [Recovered/Resolved]
  - Abdominal pain [Unknown]
  - Stoma site haemorrhage [Unknown]
  - Drug ineffective [Unknown]
  - Stoma site pain [Unknown]
  - Device issue [Recovered/Resolved]
  - Freezing phenomenon [Not Recovered/Not Resolved]
  - Dizziness [Unknown]
  - Hallucination [Unknown]
  - Dyskinesia [Unknown]
  - Depressed mood [Not Recovered/Not Resolved]
  - On and off phenomenon [Not Recovered/Not Resolved]
  - Off label use [Unknown]
  - Poor quality sleep [Unknown]
  - Device connection issue [Recovered/Resolved]
  - Device physical property issue [Not Recovered/Not Resolved]
  - Therapeutic product effect incomplete [Unknown]

NARRATIVE: CASE EVENT DATE: 20220101
